FAERS Safety Report 5481727-X (Version None)
Quarter: 2007Q4

REPORT INFORMATION
  Report Type: 
  Country: None (occurrence: None)
  Receive Date: 20071010
  Receipt Date: 20071004
  Transmission Date: 20080405
  Serious: Yes (Other)
  Sender: FDA-Public Use
  Company Number: US-SHR-US-2006-018117

PATIENT
  Age: 53 Year
  Sex: Female
  Weight: 73.923 kg

DRUGS (13)
  1. BETASERON [Suspect]
     Indication: SECONDARY PROGRESSIVE MULTIPLE SCLEROSIS
     Dosage: 4 MIU, EVERY 2D
     Route: 058
     Dates: start: 20060522
  2. BETASERON [Suspect]
     Dosage: 4 MIU, 2X/WEEK
     Dates: start: 20060522, end: 20060928
  3. BETASERON [Suspect]
     Dosage: 8 MIU, EVERY 2D
     Route: 058
     Dates: start: 20060101
  4. NISTATIN [Concomitant]
  5. LASIX [Concomitant]
  6. POTASSIUM CHLORIDE [Concomitant]
  7. EFFEXOR XR [Concomitant]
     Dosage: 75 MG, 3X/DAY
  8. ZOLOFT [Concomitant]
  9. LIPITOR [Concomitant]
  10. PREDNISONE [Concomitant]
  11. KLONOPIN [Concomitant]
     Dosage: 15 MG/D, UNK
  12. ACTONEL [Concomitant]
  13. ANTIBIOTICS [Concomitant]

REACTIONS (9)
  - DIZZINESS [None]
  - FALL [None]
  - FUNGAL INFECTION [None]
  - HEPATIC STEATOSIS [None]
  - HEPATITIS B [None]
  - INFLUENZA LIKE ILLNESS [None]
  - ORAL FUNGAL INFECTION [None]
  - SWELLING [None]
  - URINE OUTPUT DECREASED [None]
